FAERS Safety Report 25669689 (Version 1)
Quarter: 2025Q3

REPORT INFORMATION
  Report Type: Spontaneous
  Country: EU (occurrence: EU)
  Receive Date: 20250812
  Receipt Date: 20250812
  Transmission Date: 20251021
  Serious: Yes (Other)
  Sender: CSL BEHRING
  Company Number: EU-BEH-2025215378

PATIENT

DRUGS (1)
  1. ALBUREX [Suspect]
     Active Substance: ALBUMIN HUMAN
     Route: 065

REACTIONS (8)
  - Anaphylactic reaction [Unknown]
  - Hypotension [Unknown]
  - Hypersensitivity [Unknown]
  - Vasodilatation [Unknown]
  - Blood pressure decreased [Unknown]
  - Urticaria [Unknown]
  - Metabolic acidosis [Unknown]
  - Lung disorder [Unknown]
